FAERS Safety Report 7712288-X (Version None)
Quarter: 2011Q3

REPORT INFORMATION
  Report Type: 
  Country: None (occurrence: None)
  Receive Date: 20110826
  Receipt Date: 20110819
  Transmission Date: 20111222
  Serious: Yes (Death)
  Sender: FDA-Public Use
  Company Number: FR-ALEXION PHARMACEUTICALS INC.-A201101273

PATIENT
  Sex: Male

DRUGS (1)
  1. SOLIRIS [Suspect]
     Indication: ANTIPHOSPHOLIPID SYNDROME
     Dosage: UNK, QW
     Route: 042
     Dates: start: 20110729, end: 20110812

REACTIONS (1)
  - DEATH [None]
